FAERS Safety Report 20750953 (Version 1)
Quarter: 2022Q2

REPORT INFORMATION
  Report Type: Spontaneous
  Country: RU (occurrence: None)
  Receive Date: 20220426
  Receipt Date: 20220426
  Transmission Date: 20220721
  Serious: Yes (Other)
  Sender: FDA-Public Use
  Company Number: RU-Merck Healthcare KGaA-9315407

PATIENT
  Age: 46 Year
  Sex: Male
  Weight: 100 kg

DRUGS (1)
  1. AVELUMAB [Suspect]
     Active Substance: AVELUMAB
     Indication: Bladder cancer stage III
     Dosage: DOSE: 10 MG/KG
     Dates: start: 2021

REACTIONS (3)
  - Tibia fracture [Unknown]
  - Thrombocytopenia [Unknown]
  - Anaemia [Unknown]
